FAERS Safety Report 10710306 (Version 2)
Quarter: 2015Q1

REPORT INFORMATION
  Report Type: Spontaneous
  Country: US (occurrence: None)
  Receive Date: 20150112
  Receipt Date: 20150126
  Transmission Date: 20150721
  Serious: Yes (Hospitalization)
  Sender: FDA-Public Use
  Company Number: AXC-2014-000800

PATIENT
  Age: 71 Year
  Sex: Male
  Weight: 85.3 kg

DRUGS (5)
  1. NEXIUM [Concomitant]
     Active Substance: ESOMEPRAZOLE MAGNESIUM
  2. SUCRALFATE. [Suspect]
     Active Substance: SUCRALFATE
     Indication: PEPTIC ULCER
  3. CARAFATE [Suspect]
     Active Substance: SUCRALFATE
     Indication: PEPTIC ULCER
     Dates: start: 199412, end: 1995
  4. PROTONIX [Concomitant]
     Active Substance: PANTOPRAZOLE SODIUM
  5. REGLAN [Concomitant]
     Active Substance: METOCLOPRAMIDE HYDROCHLORIDE

REACTIONS (10)
  - Electrolyte imbalance [None]
  - Gait disturbance [None]
  - Activities of daily living impaired [None]
  - Abdominal discomfort [None]
  - Wrong technique in drug usage process [None]
  - No therapeutic response [None]
  - Vomiting [None]
  - Product quality issue [None]
  - Muscular weakness [None]
  - Aphagia [None]

NARRATIVE: CASE EVENT DATE: 20140113
